FAERS Safety Report 13316659 (Version 2)
Quarter: 2017Q2

REPORT INFORMATION
  Report Type: Spontaneous
  Country: IT (occurrence: IT)
  Receive Date: 20170310
  Receipt Date: 20170404
  Transmission Date: 20170830
  Serious: Yes (Hospitalization)
  Sender: FDA-Public Use
  Company Number: IT-AUROBINDO-AUR-APL-2017-30800

PATIENT
  Age: 58 Year
  Sex: Male

DRUGS (2)
  1. ETHYL ALCOHOL [Suspect]
     Active Substance: ALCOHOL
     Indication: PRODUCT USED FOR UNKNOWN INDICATION
     Dosage: WINE 2L
     Route: 065
  2. QUETIAPINE. [Suspect]
     Active Substance: QUETIAPINE
     Indication: PRODUCT USED FOR UNKNOWN INDICATION
     Dosage: 600 MG, TOTAL
     Route: 048
     Dates: start: 20160301, end: 20160301

REACTIONS (3)
  - Alcohol abuse [Unknown]
  - Troponin I increased [Unknown]
  - Drug use disorder [Unknown]

NARRATIVE: CASE EVENT DATE: 20160301
